FAERS Safety Report 9397917 (Version 2)
Quarter: 2013Q3

REPORT INFORMATION
  Report Type: Spontaneous
  Country: JP (occurrence: None)
  Receive Date: 20130709
  Receipt Date: 20130715
  Transmission Date: 20140515
  Serious: Yes (Hospitalization)
  Sender: FDA-Public Use
  Company Number: TCI2012A03481

PATIENT
  Age: 63 Year
  Sex: Male

DRUGS (5)
  1. LANSOPRAZOLE [Suspect]
     Indication: GASTROOESOPHAGEAL REFLUX DISEASE
     Dosage: 15 MG (15 MG, 1 IN 1 D), PER ORAL
     Route: 048
     Dates: start: 20120510
  2. TAK-438 [Suspect]
     Indication: GASTROOESOPHAGEAL REFLUX DISEASE
     Dosage: 20 MG (20 M 1 IN 1 D) PER ORAL
     Route: 048
     Dates: start: 20120426, end: 20120509
  3. HUMALOG MIX (INSULIN LISPRO, INSULIN LISPRO PROTAMINE SUSPENSION) [Concomitant]
  4. OLMETEC (OLMESARTAN MEDOXOMIL) [Concomitant]
  5. HYALEIN (HYALURONATE SODIUM) [Concomitant]

REACTIONS (2)
  - Diabetic retinopathy [None]
  - Condition aggravated [None]
